FAERS Safety Report 9702875 (Version 1)
Quarter: 2013Q4

REPORT INFORMATION
  Report Type: Spontaneous
  Country: US (occurrence: None)
  Receive Date: 20131120
  Receipt Date: 20131120
  Transmission Date: 20140711
  Serious: Yes (Life-Threatening, Hospitalization)
  Sender: FDA-Public Use
  Company Number: 2013/201

PATIENT
  Age: 69 Year
  Sex: Female

DRUGS (2)
  1. AMLODIPINE [Suspect]
  2. ATENOLOL [Suspect]

REACTIONS (5)
  - Overdose [None]
  - Lethargy [None]
  - Blood glucose increased [None]
  - Hypokalaemia [None]
  - Shock [None]
